FAERS Safety Report 9869917 (Version 1)
Quarter: 2014Q1

REPORT INFORMATION
  Report Type: Spontaneous
  Country: US (occurrence: None)
  Receive Date: 20140203
  Receipt Date: 20140203
  Transmission Date: 20141002
  Serious: Yes (Life-Threatening, Hospitalization)
  Sender: FDA-Public Use
  Company Number: None

PATIENT
  Age: 76 Year
  Sex: Female
  Weight: 89.1 kg

DRUGS (21)
  1. REGLAN [Suspect]
     Indication: NAUSEA
     Route: 042
     Dates: start: 20140116, end: 20140116
  2. REGLAN [Suspect]
     Indication: VOMITING
     Route: 042
     Dates: start: 20140116, end: 20140116
  3. APAP [Concomitant]
  4. ADVAIR [Concomitant]
  5. DUONEB [Concomitant]
  6. ASA [Concomitant]
  7. ATORVASTATIN [Concomitant]
  8. BISACODYL [Concomitant]
  9. CEFAZOLIN [Concomitant]
  10. CEFEPIME [Concomitant]
  11. CLONAZEPAM [Concomitant]
  12. DOCUSATE [Concomitant]
  13. EZETIMIBE [Concomitant]
  14. HYDROMORPHONE [Concomitant]
  15. INSULIN DETEMIR [Concomitant]
  16. LEVOTHYROXINE [Concomitant]
  17. OXYCODONE [Concomitant]
  18. PANTOPRAZOLE [Concomitant]
  19. LYRICA [Concomitant]
  20. SERTRALINE [Concomitant]
  21. WARFARIN [Concomitant]

REACTIONS (6)
  - Neuroleptic malignant syndrome [None]
  - Mental status changes [None]
  - Hyperthermia [None]
  - Muscle rigidity [None]
  - Blood creatine phosphokinase increased [None]
  - Autonomic nervous system imbalance [None]
